FAERS Safety Report 7180652-6 (Version None)
Quarter: 2010Q4

REPORT INFORMATION
  Report Type: 
  Country: None (occurrence: None)
  Receive Date: 20101221
  Receipt Date: 20101214
  Transmission Date: 20110411
  Serious: Yes (Hospitalization)
  Sender: FDA-Public Use
  Company Number: US-US-EMD SERONO, INC.-7031105

PATIENT
  Sex: Female
  Weight: 52 kg

DRUGS (17)
  1. REBIF [Suspect]
     Indication: MULTIPLE SCLEROSIS
     Route: 058
     Dates: start: 20071205
  2. REBIF [Suspect]
     Route: 058
     Dates: start: 20100318, end: 20100101
  3. REBIF [Suspect]
     Route: 058
     Dates: start: 20100101
  4. SULFASALAZINE [Concomitant]
     Route: 048
  5. ZOLPIDEM [Concomitant]
     Route: 048
  6. ALPRAZOLAM [Concomitant]
     Route: 048
  7. ALPRAZOLAM [Concomitant]
     Route: 048
  8. AMLODIPINE [Concomitant]
     Route: 048
  9. MECLIZINE [Concomitant]
     Route: 048
  10. NAPROXEN [Concomitant]
     Route: 048
  11. METHYLPHENIDATE [Concomitant]
     Route: 048
  12. DOCUSATE SODIUM [Concomitant]
     Route: 048
  13. NYSTATIN [Concomitant]
     Route: 048
  14. CYANOCOBALAMIN [Concomitant]
  15. RISPERIDONE [Concomitant]
     Route: 048
  16. METAXALONE [Concomitant]
     Route: 048
  17. BUPROPION [Concomitant]
     Route: 048

REACTIONS (4)
  - ENCEPHALITIS VIRAL [None]
  - ENCEPHALOPATHY [None]
  - FALL [None]
  - MULTIPLE SCLEROSIS RELAPSE [None]
